FAERS Safety Report 8277690-9 (Version None)
Quarter: 2012Q2

REPORT INFORMATION
  Report Type: 
  Country: None (occurrence: None)
  Receive Date: 20120412
  Receipt Date: 20120410
  Transmission Date: 20120825
  Serious: Yes (Hospitalization, Other)
  Sender: FDA-Public Use
  Company Number: US-PFIZER INC-2012037201

PATIENT
  Sex: Male
  Weight: 79.37 kg

DRUGS (7)
  1. LIPITOR [Suspect]
     Indication: CEREBROVASCULAR ACCIDENT
     Dosage: 20 MG, 1X/DAY
     Route: 048
  2. ADVAIR DISKUS 100/50 [Concomitant]
     Indication: ASTHMA
     Dosage: UNK
  3. ZYLOPRIM [Concomitant]
     Indication: GOUT
     Dosage: 300 MG, UNK
  4. SINGULAIR [Concomitant]
     Indication: ASTHMA
     Dosage: 10 MG, UNK
  5. NORVASC [Concomitant]
     Dosage: 2.5 MG, UNK
  6. ACETYLSALICYLIC ACID [Concomitant]
     Dosage: 81 MG, UNK
  7. PLAVIX [Concomitant]
     Dosage: UNK

REACTIONS (2)
  - ASTHMA [None]
  - PNEUMONIA [None]
